FAERS Safety Report 9889699 (Version 1)
Quarter: 2014Q1

REPORT INFORMATION
  Report Type: Spontaneous
  Country: CH (occurrence: CH)
  Receive Date: 20140211
  Receipt Date: 20140211
  Transmission Date: 20141002
  Serious: Yes (Hospitalization)
  Sender: FDA-Public Use
  Company Number: CH-PFIZER INC-2014037663

PATIENT
  Age: 69 Year
  Sex: Male

DRUGS (8)
  1. CORDARONE [Suspect]
     Indication: TACHYCARDIA
     Dosage: 200 MG, DAILY
     Route: 048
     Dates: end: 20140114
  2. DILATREND [Interacting]
     Indication: TACHYCARDIA
     Dosage: 6.25 MG, 2X/DAY
     Route: 048
     Dates: end: 20140107
  3. MARCOUMAR [Concomitant]
     Dosage: UNK
  4. ASPIRIN CARDIO [Concomitant]
     Dosage: UNK
  5. CANDESARTAN [Concomitant]
     Dosage: UNK
  6. ALDACTONE [Concomitant]
     Dosage: UNK
  7. SORTIS [Concomitant]
     Dosage: UNK
  8. LEVOTHYROXINE SODIUM [Concomitant]
     Dosage: UNK

REACTIONS (4)
  - Drug interaction [Unknown]
  - Bradycardia [Unknown]
  - Dizziness [Unknown]
  - Loss of consciousness [Unknown]
